FAERS Safety Report 18212449 (Version 1)
Quarter: 2020Q3

REPORT INFORMATION
  Report Type: Spontaneous
  Country: US (occurrence: US)
  Receive Date: 20200828
  Receipt Date: 20200828
  Transmission Date: 20201103
  Serious: No
  Sender: FDA-Public Use
  Company Number: None

PATIENT
  Age: 55 Year
  Sex: Male
  Weight: 72 kg

DRUGS (5)
  1. XARELTO [Suspect]
     Active Substance: RIVAROXABAN
     Indication: DEEP VEIN THROMBOSIS
     Dosage: ?          QUANTITY:1 TABLET(S);?
     Route: 048
     Dates: start: 20200817
  2. FENOFIBRATE. [Concomitant]
     Active Substance: FENOFIBRATE
  3. XARELTO [Concomitant]
     Active Substance: RIVAROXABAN
  4. GAPAPENTIN [Concomitant]
  5. LEVOTHYROXINE. [Concomitant]
     Active Substance: LEVOTHYROXINE

REACTIONS (4)
  - Lip swelling [None]
  - Abdominal pain upper [None]
  - Back pain [None]
  - Constipation [None]

NARRATIVE: CASE EVENT DATE: 20200821
